FAERS Safety Report 23363908 (Version 3)
Quarter: 2024Q1

REPORT INFORMATION
  Report Type: Spontaneous
  Country: CH (occurrence: CH)
  Receive Date: 20240104
  Receipt Date: 20240129
  Transmission Date: 20240409
  Serious: Yes (Hospitalization)
  Sender: FDA-Public Use
  Company Number: None

PATIENT
  Age: 44 Year
  Sex: Female
  Weight: 63 kg

DRUGS (6)
  1. YERVOY [Suspect]
     Active Substance: IPILIMUMAB
     Indication: Metastatic malignant melanoma
     Dosage: 190 MG/DOSE
     Route: 042
     Dates: start: 20230921
  2. YERVOY [Suspect]
     Active Substance: IPILIMUMAB
     Dosage: 190 MG/DOSE
     Route: 042
     Dates: start: 20231012
  3. OPDIVO [Suspect]
     Active Substance: NIVOLUMAB
     Indication: Metastatic malignant melanoma
     Dosage: 65 MG/DOSE
     Route: 042
     Dates: start: 20230921
  4. OPDIVO [Suspect]
     Active Substance: NIVOLUMAB
     Dosage: 65 MG/DOSE
     Route: 042
     Dates: start: 20231012
  5. KEYTRUDA [Suspect]
     Active Substance: PEMBROLIZUMAB
     Indication: Metastatic malignant melanoma
     Dates: end: 202209
  6. KEYTRUDA [Suspect]
     Active Substance: PEMBROLIZUMAB
     Dosage: 200 MG/DOSE
     Route: 042
     Dates: start: 20230817, end: 20230817

REACTIONS (2)
  - Cholecystitis acute [Unknown]
  - Hepatitis [Unknown]

NARRATIVE: CASE EVENT DATE: 20231029
